FAERS Safety Report 6389622-9 (Version None)
Quarter: 2009Q4

REPORT INFORMATION
  Report Type: 
  Country: None (occurrence: None)
  Receive Date: 20091006
  Receipt Date: 20090922
  Transmission Date: 20100525
  Serious: Yes (Hospitalization)
  Sender: FDA-Public Use
  Company Number: PHHY2009CA17806

PATIENT
  Sex: Male

DRUGS (3)
  1. EXJADE [Suspect]
     Indication: MYELODYSPLASTIC SYNDROME
     Dosage: 750-1500 MG DAILY
     Route: 048
     Dates: start: 20081201
  2. EXJADE [Suspect]
     Indication: IRON OVERLOAD
     Dosage: 2000 MG, UNK
     Route: 048
     Dates: start: 20090301
  3. EXJADE [Suspect]
     Indication: HAEMOCHROMATOSIS

REACTIONS (5)
  - ASTHENIA [None]
  - CONSTIPATION [None]
  - PSEUDOLYMPHOMA [None]
  - SPLEEN OPERATION [None]
  - WEIGHT DECREASED [None]
